FAERS Safety Report 7041559-8 (Version None)
Quarter: 2010Q4

REPORT INFORMATION
  Report Type: 
  Country: None (occurrence: None)
  Receive Date: 20101013
  Receipt Date: 20100809
  Transmission Date: 20110411
  Serious: No
  Sender: FDA-Public Use
  Company Number: US-ASTRAZENECA-2010SE37255

PATIENT
  Sex: Female

DRUGS (3)
  1. SYMBICORT [Suspect]
     Indication: ASTHMA
     Dosage: 160/4.5 MCG
     Route: 055
     Dates: start: 20100101
  2. SINGULAIR [Concomitant]
  3. OMNARIS [Concomitant]

REACTIONS (2)
  - DYSPNOEA [None]
  - VOCAL CORD DISORDER [None]
